FAERS Safety Report 5442368-3 (Version None)
Quarter: 2007Q3

REPORT INFORMATION
  Report Type: 
  Country: None (occurrence: None)
  Receive Date: 20070904
  Receipt Date: 20070823
  Transmission Date: 20080115
  Serious: Yes (Death, Life-Threatening)
  Sender: FDA-Public Use
  Company Number: JP-PFIZER INC-2007056719

PATIENT
  Sex: Female

DRUGS (4)
  1. SULPERAZON [Suspect]
     Indication: ANTIBIOTIC PROPHYLAXIS
     Route: 042
     Dates: start: 20070405, end: 20070406
  2. NORVASC [Concomitant]
     Route: 048
  3. DOXAZOSIN MESYLATE [Concomitant]
     Route: 048
  4. THEOLONG [Concomitant]
     Route: 048

REACTIONS (1)
  - PSEUDOMEMBRANOUS COLITIS [None]
